FAERS Safety Report 11315147 (Version 1)
Quarter: 2015Q3

REPORT INFORMATION
  Report Type: Spontaneous
  Country: BR (occurrence: BR)
  Receive Date: 20150727
  Receipt Date: 20150727
  Transmission Date: 20151125
  Serious: Yes (Other)
  Sender: FDA-Public Use
  Company Number: PHHY2015BR089945

PATIENT
  Sex: Female

DRUGS (1)
  1. DIOVAN [Suspect]
     Active Substance: VALSARTAN
     Indication: PRODUCT USED FOR UNKNOWN INDICATION
     Route: 065

REACTIONS (6)
  - Diverticulitis [Unknown]
  - Coronary artery disease [Unknown]
  - Drug hypersensitivity [Unknown]
  - Hypertension [Unknown]
  - Intestinal haemorrhage [Recovered/Resolved]
  - Melaena [Recovered/Resolved]
